FAERS Safety Report 24246121 (Version 2)
Quarter: 2024Q4

REPORT INFORMATION
  Report Type: Report from Study
  Country: CA (occurrence: CA)
  Receive Date: 20240824
  Receipt Date: 20241002
  Transmission Date: 20250115
  Serious: No
  Sender: AMGEN
  Company Number: CA-Vifor (International) Inc.-VIT-2024-02797

PATIENT
  Age: 59 Year
  Sex: Male

DRUGS (1)
  1. AVACOPAN [Suspect]
     Active Substance: AVACOPAN
     Indication: Anti-neutrophil cytoplasmic antibody positive vasculitis
     Dosage: ON 09-MAY-2024, RESTARTED THE THERAPY WITH TAVNEOS
     Route: 048
     Dates: start: 202401

REACTIONS (1)
  - Drug ineffective [Unknown]

NARRATIVE: CASE EVENT DATE: 20240101
